FAERS Safety Report 5269554-X (Version None)
Quarter: 2007Q1

REPORT INFORMATION
  Report Type: 
  Country: None (occurrence: None)
  Receive Date: 20070320
  Receipt Date: 20070307
  Transmission Date: 20070707
  Serious: Yes (Other)
  Sender: FDA-Public Use
  Company Number: PHBS2006JP19533

PATIENT
  Age: 24 Year
  Sex: Male
  Weight: 65 kg

DRUGS (3)
  1. LAMISIL [Suspect]
     Indication: NAIL TINEA
     Dosage: 125 MG/DAY
     Route: 048
     Dates: start: 20060713, end: 20060808
  2. ASTAT [Concomitant]
     Route: 061
  3. ASTAT [Concomitant]
     Route: 061

REACTIONS (1)
  - BLOOD CREATINE PHOSPHOKINASE INCREASED [None]
